FAERS Safety Report 15860080 (Version 2)
Quarter: 2021Q4

REPORT INFORMATION
  Report Type: Spontaneous
  Country: US (occurrence: US)
  Receive Date: 20190123
  Receipt Date: 20211215
  Transmission Date: 20220303
  Serious: Yes (Hospitalization)
  Sender: FDA-Public Use
  Company Number: US-MYLANLABS-2019M1005492

PATIENT
  Age: 20 Month
  Sex: Female

DRUGS (5)
  1. CALCITONIN SALMON [Suspect]
     Active Substance: CALCITONIN SALMON
     Indication: Hypervitaminosis D
     Dosage: UNK
  2. PREDNISONE [Suspect]
     Active Substance: PREDNISONE
     Indication: Hypervitaminosis D
     Dosage: UNK
  3. PREDNISONE [Suspect]
     Active Substance: PREDNISONE
     Indication: Hypercalcaemia
  4. ZOLEDRONIC ACID [Suspect]
     Active Substance: ZOLEDRONIC ACID
     Indication: Hypervitaminosis D
     Dosage: 1 DOSAGE FORM, ONCE
  5. CALCIUM\CHOLECALCIFEROL [Suspect]
     Active Substance: CALCIUM\CHOLECALCIFEROL
     Indication: Dental caries
     Dosage: UNK
     Route: 048

REACTIONS (13)
  - Hypercalcaemia [Recovering/Resolving]
  - Tachycardia [Recovered/Resolved]
  - Hyperphosphataemia [Recovering/Resolving]
  - Hypervitaminosis D [Recovering/Resolving]
  - Dysstasia [Recovering/Resolving]
  - Gait inability [Recovering/Resolving]
  - Hypomagnesaemia [Recovering/Resolving]
  - Drug ineffective [Unknown]
  - Intentional overdose [Recovering/Resolving]
  - Intentional product misuse to child [Recovering/Resolving]
  - Product use issue [Unknown]
  - Product use in unapproved indication [Unknown]
  - Therapeutic product effect decreased [Unknown]
